FAERS Safety Report 6687583-6 (Version None)
Quarter: 2010Q2

REPORT INFORMATION
  Report Type: 
  Country: None (occurrence: None)
  Receive Date: 20100416
  Receipt Date: 20100416
  Transmission Date: 20101027
  Serious: No
  Sender: FDA-Public Use
  Company Number: None

PATIENT
  Age: 78 Year
  Sex: Male
  Weight: 100 kg

DRUGS (1)
  1. BRIMONIDINE 0.15% GENERIC [Suspect]
     Indication: GLAUCOMA
     Dosage: 1 GT TIE OPHTHALMIC
     Route: 047
     Dates: start: 20100103, end: 20100327

REACTIONS (2)
  - EYE IRRITATION [None]
  - OCULAR HYPERAEMIA [None]
